FAERS Safety Report 4682977-2 (Version None)
Quarter: 2005Q2

REPORT INFORMATION
  Report Type: 
  Country: None (occurrence: None)
  Receive Date: 20050602
  Receipt Date: 20050211
  Transmission Date: 20051028
  Serious: No
  Sender: FDA-Public Use
  Company Number: USA050290578

PATIENT
  Sex: Male

DRUGS (6)
  1. CYMBALTA [Suspect]
     Dosage: 30 MG DAY
     Dates: start: 20041201
  2. STRATTERA [Suspect]
     Dosage: 40 MG DAY
     Dates: start: 20050101
  3. RITALIN [Concomitant]
  4. WELLBUTRIN SR [Concomitant]
  5. XANAX (ALPRAZOLAM DUM) [Concomitant]
  6. KLONOPIN [Concomitant]

REACTIONS (8)
  - ANXIETY [None]
  - BLOOD PRESSURE INCREASED [None]
  - DRUG INEFFECTIVE [None]
  - EJACULATION FAILURE [None]
  - ERECTILE DYSFUNCTION [None]
  - HEART RATE INCREASED [None]
  - PANIC DISORDER [None]
  - PARANOIA [None]
